FAERS Safety Report 9227053 (Version 1)
Quarter: 2013Q2

REPORT INFORMATION
  Report Type: Spontaneous
  Country: JP (occurrence: None)
  Receive Date: 20130410
  Receipt Date: 20130410
  Transmission Date: 20140414
  Serious: Yes (Disabling)
  Sender: FDA-Public Use
  Company Number: SPI-201300164

PATIENT
  Age: 83 Year
  Sex: Female

DRUGS (10)
  1. AMITIZA [Suspect]
     Indication: BOWEL MOVEMENT IRREGULARITY
     Route: 048
     Dates: start: 20130123, end: 20130123
  2. FEBUXOSTAT [Concomitant]
  3. MUCOSTA [Concomitant]
  4. JUVELA [Concomitant]
  5. ATELEC [Concomitant]
  6. CERCINE [Concomitant]
  7. AVAPRO [Concomitant]
  8. KAYEXALATE [Concomitant]
  9. NITROPEN [Concomitant]
  10. NESP [Concomitant]

REACTIONS (4)
  - Dehydration [None]
  - Pyrexia [None]
  - Rash [None]
  - Diarrhoea [None]
